FAERS Safety Report 22589617 (Version 1)
Quarter: 2023Q2

REPORT INFORMATION
  Report Type: Spontaneous
  Country: CN (occurrence: CN)
  Receive Date: 20230612
  Receipt Date: 20230612
  Transmission Date: 20230721
  Serious: Yes (Life-Threatening, Hospitalization, Other)
  Sender: FDA-Public Use
  Company Number: CN-PFIZER INC-202300215075

PATIENT

DRUGS (3)
  1. AMPICILLIN SODIUM\SULBACTAM SODIUM [Suspect]
     Active Substance: AMPICILLIN SODIUM\SULBACTAM SODIUM
     Indication: Listeriosis
     Dosage: UNK
     Route: 064
  2. CEFUROXIME SODIUM [Suspect]
     Active Substance: CEFUROXIME SODIUM
     Indication: Anti-infective therapy
     Dosage: UNK
     Route: 064
  3. DEXAMETHASONE SODIUM PHOSPHATE [Suspect]
     Active Substance: DEXAMETHASONE SODIUM PHOSPHATE
     Indication: Anti-infective therapy
     Dosage: UNK
     Route: 064

REACTIONS (7)
  - Maternal exposure during pregnancy [Unknown]
  - Therapeutic product effect incomplete [Unknown]
  - Premature baby [Unknown]
  - Sepsis neonatal [Unknown]
  - Dehydration [Unknown]
  - Intracranial infection [Unknown]
  - Underweight [Unknown]
